FAERS Safety Report 25533855 (Version 1)
Quarter: 2025Q3

REPORT INFORMATION
  Report Type: Spontaneous
  Country: US (occurrence: US)
  Receive Date: 20250709
  Receipt Date: 20250709
  Transmission Date: 20251020
  Serious: Yes (Life-Threatening, Hospitalization)
  Sender: DR REDDYS
  Company Number: None

PATIENT
  Age: 50 Year
  Sex: Female

DRUGS (5)
  1. CLOZAPINE [Suspect]
     Active Substance: CLOZAPINE
     Indication: Schizophrenia
     Dates: end: 2019
  2. CLOZAPINE [Suspect]
     Active Substance: CLOZAPINE
     Dosage: MOST RECENT
  3. CLOZAPINE [Suspect]
     Active Substance: CLOZAPINE
     Dosage: GRADUALLY REINTRODUCED
  4. CLOZAPINE [Suspect]
     Active Substance: CLOZAPINE
     Dosage: DAY 14
  5. OLANZAPINE [Concomitant]
     Active Substance: OLANZAPINE
     Indication: Schizophrenia

REACTIONS (1)
  - Ileus [Unknown]
